FAERS Safety Report 17895512 (Version 1)
Quarter: 2020Q2

REPORT INFORMATION
  Report Type: Spontaneous
  Country: US (occurrence: US)
  Receive Date: 20200615
  Receipt Date: 20200615
  Transmission Date: 20200714
  Serious: Yes (Disabling)
  Sender: FDA-Public Use
  Company Number: None

PATIENT
  Age: 80 Year
  Sex: Female

DRUGS (1)
  1. NP THYROID [Suspect]
     Active Substance: LEVOTHYROXINE\LIOTHYRONINE
     Indication: THYROID HORMONES DECREASED
     Route: 048
     Dates: start: 20200603, end: 20200604

REACTIONS (7)
  - Accidental overdose [None]
  - Thyrotoxic crisis [None]
  - Abdominal pain upper [None]
  - Vomiting [None]
  - Dizziness [None]
  - Recalled product administered [None]
  - Recalled product [None]

NARRATIVE: CASE EVENT DATE: 20200604
